FAERS Safety Report 25225490 (Version 1)
Quarter: 2025Q2

REPORT INFORMATION
  Report Type: Spontaneous
  Country: US (occurrence: None)
  Receive Date: 20250422
  Receipt Date: 20250422
  Transmission Date: 20250716
  Serious: Yes (Hospitalization)
  Sender: FDA-CTU
  Company Number: None

PATIENT
  Age: 68 Year
  Sex: Female

DRUGS (1)
  1. PIQRAY [Suspect]
     Active Substance: ALPELISIB
     Dosage: 300 MG DAILY ORAL ?
     Route: 048

REACTIONS (5)
  - Pyrexia [None]
  - Rash [None]
  - Circulatory collapse [None]
  - Gait inability [None]
  - Adverse drug reaction [None]

NARRATIVE: CASE EVENT DATE: 20250411
